FAERS Safety Report 9514521 (Version 3)
Quarter: 2013Q4

REPORT INFORMATION
  Report Type: Spontaneous
  Country: HK (occurrence: HK)
  Receive Date: 20130911
  Receipt Date: 20131024
  Transmission Date: 20140711
  Serious: Yes (Other)
  Sender: FDA-Public Use
  Company Number: HK-AMGEN-HKGSP2013063248

PATIENT
  Age: 79 Year
  Sex: Female
  Weight: 34.5 kg

DRUGS (2)
  1. PROLIA [Suspect]
     Indication: PRODUCT USED FOR UNKNOWN INDICATION
     Dosage: 60MG PER DAY
     Route: 058
     Dates: start: 20120830
  2. FOSAMAX [Concomitant]
     Dosage: 70 MG, QWK

REACTIONS (7)
  - Osteomyelitis chronic [Recovered/Resolved]
  - Abscess jaw [Recovered/Resolved]
  - Toothache [Recovered/Resolved]
  - Tooth disorder [Recovered/Resolved]
  - Tooth extraction [Recovered/Resolved]
  - Impaired healing [Recovered/Resolved]
  - Osteonecrosis of jaw [Recovered/Resolved]
